FAERS Safety Report 20297498 (Version 2)
Quarter: 2024Q2

REPORT INFORMATION
  Report Type: Spontaneous
  Country: US (occurrence: None)
  Receive Date: 20220105
  Receipt Date: 20240509
  Transmission Date: 20240715
  Serious: Yes (Hospitalization)
  Sender: FDA-Public Use
  Company Number: US-ROCHE-2955537

PATIENT
  Age: 5 Year
  Sex: Male
  Weight: 41.314 kg

DRUGS (2)
  1. HEMLIBRA [Suspect]
     Active Substance: EMICIZUMAB-KXWH
     Indication: Factor VIII deficiency
     Dosage: 60 MG/0.4ML
     Route: 058
     Dates: start: 20211018
  2. HEMLIBRA [Suspect]
     Active Substance: EMICIZUMAB-KXWH
     Dosage: 60 MG/0.4ML
     Route: 058
     Dates: start: 202208

REACTIONS (2)
  - Haemorrhage [Not Recovered/Not Resolved]
  - Head injury [Unknown]

NARRATIVE: CASE EVENT DATE: 20240204
